FAERS Safety Report 6346658-1 (Version None)
Quarter: 2009Q3

REPORT INFORMATION
  Report Type: 
  Country: None (occurrence: None)
  Receive Date: 20090904
  Receipt Date: 20090825
  Transmission Date: 20100115
  Serious: Yes (Hospitalization, Disabling, Other)
  Sender: FDA-Public Use
  Company Number: 2009-03130

PATIENT
  Age: 68 Year
  Sex: Male

DRUGS (1)
  1. VELCADE [Suspect]
     Indication: MULTIPLE MYELOMA
     Dosage: 3 MG, INTRAVENOUS
     Route: 042
     Dates: start: 20090507, end: 20090609

REACTIONS (10)
  - CHEST PAIN [None]
  - DEMYELINATION [None]
  - GUILLAIN-BARRE SYNDROME [None]
  - NEUROPATHY PERIPHERAL [None]
  - OSTEOPOROSIS [None]
  - PAIN [None]
  - PERIPHERAL MOTOR NEUROPATHY [None]
  - SENSORY LOSS [None]
  - SPINAL COMPRESSION FRACTURE [None]
  - SPINAL CORD DISORDER [None]
